FAERS Safety Report 9261475 (Version 1)
Quarter: 2013Q2

REPORT INFORMATION
  Report Type: Spontaneous
  Country: US (occurrence: US)
  Receive Date: 20130429
  Receipt Date: 20130429
  Transmission Date: 20140414
  Serious: Yes (Hospitalization)
  Sender: FDA-Public Use
  Company Number: US-BAYER-2013-051896

PATIENT
  Age: 35 Year
  Sex: Female
  Weight: 66.67 kg

DRUGS (2)
  1. YASMIN [Suspect]
  2. HYDROCORTISONE-NEOMYCIN-POLYMYXIN B [Concomitant]
     Dosage: 1 %, UNK
     Route: 047
     Dates: start: 20040615

REACTIONS (1)
  - Pulmonary embolism [None]
